FAERS Safety Report 13448225 (Version 1)
Quarter: 2017Q2

REPORT INFORMATION
  Report Type: Other
  Country: RO (occurrence: RO)
  Receive Date: 20170417
  Receipt Date: 20170417
  Transmission Date: 20170830
  Serious: Yes (Hospitalization)
  Sender: FDA-Public Use
  Company Number: RO-VALIDUS PHARMACEUTICALS LLC-RO-2017VAL000602

PATIENT
  Age: 54 Year
  Sex: Female

DRUGS (3)
  1. SODIUM CHLORIDE. [Concomitant]
     Active Substance: SODIUM CHLORIDE
     Indication: PRODUCT USED FOR UNKNOWN INDICATION
     Dosage: UNK
     Dates: start: 20170302, end: 20170313
  2. ALGOCALMIN [Suspect]
     Active Substance: METAMIZOLE SODIUM
     Indication: PYREXIA
     Dosage: 1 DOSAGE FORM;TOTAL
     Route: 048
     Dates: start: 20170304, end: 20170304
  3. FUROSEMIDE. [Suspect]
     Active Substance: FUROSEMIDE
     Indication: HYPERCALCAEMIA
     Dosage: 1 DF, QD
     Route: 042
     Dates: start: 20170302, end: 20170313

REACTIONS (1)
  - Bone marrow failure [Recovered/Resolved]

NARRATIVE: CASE EVENT DATE: 20170306
